FAERS Safety Report 6438795-8 (Version None)
Quarter: 2009Q4

REPORT INFORMATION
  Report Type: 
  Country: None (occurrence: None)
  Receive Date: 20091113
  Receipt Date: 20091111
  Transmission Date: 20100525
  Serious: Yes (Hospitalization, Other)
  Sender: FDA-Public Use
  Company Number: FR-JNJFOC-20091101694

PATIENT
  Age: 77 Year
  Sex: Female

DRUGS (2)
  1. TAVANIC [Suspect]
     Indication: LUNG DISORDER
     Route: 048
     Dates: start: 20091012, end: 20091015
  2. RULID [Suspect]
     Indication: PYREXIA
     Route: 048

REACTIONS (2)
  - ERYTHEMA MULTIFORME [None]
  - LARYNGEAL DYSPNOEA [None]
